FAERS Safety Report 6370110-0 (Version None)
Quarter: 2009Q3

REPORT INFORMATION
  Report Type: 
  Country: None (occurrence: None)
  Receive Date: 20090923
  Receipt Date: 20070827
  Transmission Date: 20100115
  Serious: Yes (Hospitalization)
  Sender: FDA-Public Use
  Company Number: US-ASTRAZENECA-2006UW22026

PATIENT
  Age: 17729 Day
  Sex: Female

DRUGS (11)
  1. SEROQUEL [Suspect]
     Route: 048
     Dates: start: 20050816
  2. NEURONTIN [Concomitant]
     Dosage: 300-1800 MG
     Route: 048
     Dates: start: 20050825
  3. ASPIRIN [Concomitant]
     Dates: start: 20051012
  4. MORPHINE [Concomitant]
     Dosage: STRENGTH 4 MG/ML
     Dates: start: 20050825
  5. ALBUTEROL [Concomitant]
     Dosage: 5 MG/ML-0.5 ML
     Dates: start: 20050825
  6. DESYREL [Concomitant]
     Dosage: 100-300 MG
     Route: 048
     Dates: start: 19971006
  7. KLONOPIN [Concomitant]
     Route: 048
     Dates: start: 19971006
  8. LOPRESSOR [Concomitant]
     Indication: HYPERTENSION
     Route: 048
     Dates: start: 20050816
  9. PEPCID [Concomitant]
     Route: 048
     Dates: start: 20050528
  10. MS CONTIN [Concomitant]
     Route: 048
     Dates: start: 20050825
  11. COLACE [Concomitant]
     Route: 048
     Dates: start: 20050825

REACTIONS (2)
  - DIABETES MELLITUS [None]
  - TYPE 2 DIABETES MELLITUS [None]
